FAERS Safety Report 5004239-6 (Version None)
Quarter: 2006Q2

REPORT INFORMATION
  Report Type: 
  Country: None (occurrence: None)
  Receive Date: 20060511
  Receipt Date: 20060503
  Transmission Date: 20061013
  Serious: Yes (Death, Life-Threatening, Hospitalization, Disabling)
  Sender: FDA-Public Use
  Company Number: HQWYE040728APR06

PATIENT
  Age: 49 Year
  Sex: Female

DRUGS (2)
  1. EFFEXOR XR [Suspect]
     Indication: DEPRESSION
     Dosage: RANGED FROM 37.5 MG UP TO 150 MG DAILY ORAL ; 150 MG 1X PER 1 DAY ORAL
     Route: 048
     Dates: start: 19980101, end: 20040101
  2. EFFEXOR XR [Suspect]
     Indication: DEPRESSION
     Dosage: RANGED FROM 37.5 MG UP TO 150 MG DAILY ORAL ; 150 MG 1X PER 1 DAY ORAL
     Route: 048
     Dates: start: 20040101, end: 20050101

REACTIONS (14)
  - ANGER [None]
  - COMPLETED SUICIDE [None]
  - DEPRESSION [None]
  - DRUG WITHDRAWAL SYNDROME [None]
  - GUN SHOT WOUND [None]
  - HYPOAESTHESIA [None]
  - INFLUENZA LIKE ILLNESS [None]
  - MOOD ALTERED [None]
  - NERVOUS SYSTEM DISORDER [None]
  - PARAESTHESIA [None]
  - SELF MUTILATION [None]
  - SUICIDE ATTEMPT [None]
  - VERTIGO [None]
  - WEIGHT DECREASED [None]
